FAERS Safety Report 7374761-6 (Version None)
Quarter: 2011Q1

REPORT INFORMATION
  Report Type: 
  Country: None (occurrence: None)
  Receive Date: 20110325
  Receipt Date: 20101019
  Transmission Date: 20110831
  Serious: No
  Sender: FDA-Public Use
  Company Number: US-MYLANLABS-2010S1019407

PATIENT
  Age: 51 Year
  Sex: Female
  Weight: 94.8 kg

DRUGS (9)
  1. LORTAB [Concomitant]
     Indication: BREAKTHROUGH PAIN
     Dates: start: 20101001
  2. PLAVIX [Concomitant]
     Dates: start: 20070101
  3. ZOLOFT [Concomitant]
     Indication: ANXIETY
  4. FENTANYL-100 [Suspect]
     Indication: PAIN
     Dosage: CHANGED Q. 72 HOURS.
     Route: 062
     Dates: start: 20101013
  5. OMEPRAZOLE [Concomitant]
     Indication: GASTROOESOPHAGEAL REFLUX DISEASE
     Dates: start: 20070101
  6. ZOCOR [Concomitant]
     Indication: BLOOD CHOLESTEROL INCREASED
     Dates: start: 20070101
  7. SINGULAIR [Concomitant]
     Indication: HYPERSENSITIVITY
     Dates: start: 20000101
  8. QUINAPRIL [Concomitant]
     Indication: BLOOD PRESSURE INCREASED
     Dates: start: 20070101
  9. ASPIRIN [Concomitant]
     Dates: start: 20070101

REACTIONS (1)
  - MUSCLE SPASMS [None]
